FAERS Safety Report 5340357-0 (Version None)
Quarter: 2007Q2

REPORT INFORMATION
  Report Type: 
  Country: None (occurrence: None)
  Receive Date: 20070405
  Receipt Date: 20061109
  Transmission Date: 20071010
  Serious: No
  Sender: FDA-Public Use
  Company Number: US200610003404

PATIENT
  Age: 82 Year
  Sex: Male

DRUGS (3)
  1. FORTEO [Suspect]
     Indication: OSTEOPOROSIS
     Dates: start: 20060201
  2. CYMBALTA [Suspect]
     Indication: DEPRESSION
     Dosage: SEE IMAGE
  3. FORTEO [Concomitant]

REACTIONS (5)
  - FEELING HOT [None]
  - FLUSHING [None]
  - NERVOUSNESS [None]
  - PSYCHOMOTOR HYPERACTIVITY [None]
  - SPINAL FRACTURE [None]
